FAERS Safety Report 8477075-6 (Version None)
Quarter: 2012Q2

REPORT INFORMATION
  Report Type: 
  Country: None (occurrence: None)
  Receive Date: 20120629
  Receipt Date: 20120622
  Transmission Date: 20120825
  Serious: No
  Sender: FDA-Public Use
  Company Number: US-PFIZER INC-2012109089

PATIENT
  Sex: Female
  Weight: 70.7 kg

DRUGS (27)
  1. LEVOTHROID [Concomitant]
     Indication: HYPOTHYROIDISM
     Dosage: 75 UG, 1X/DAY
  2. CYMBALTA [Concomitant]
     Indication: DEPRESSION
     Dosage: 30 MG, 2X/DAY
     Route: 048
  3. PROVENTIL-HFA [Concomitant]
     Dosage: 2 PUFFS, 4X/DAY AS NEEDED
  4. ASPIRIN [Concomitant]
     Dosage: 325 MG, 1X/DAY
     Route: 048
  5. LEUCOVORIN CALCIUM [Concomitant]
     Dosage: 5 MG, WEEKLY (8-HOURS AFTER METHOTREXATE DOSE, ONE DAY A WEEK)
     Route: 048
  6. CHANTIX [Suspect]
     Indication: SMOKING CESSATION THERAPY
     Dosage: 0.5 MG, 1X/DAY
     Route: 048
     Dates: start: 20120401
  7. CHANTIX [Suspect]
     Dosage: 0.5 MG, UNK
     Route: 048
  8. CHANTIX [Suspect]
     Dosage: 1 MG, 2X/DAY
     Route: 048
  9. MULTIPLE VITAMINS [Concomitant]
     Dosage: 1 TABLET, 1X/DAY
     Route: 048
  10. OPANA [Concomitant]
     Indication: NEUROPATHY PERIPHERAL
     Dosage: 15MG IN MORNING AND 10MG AT NIGHT (2X/DAY)
     Route: 048
  11. PERCOCET [Concomitant]
     Dosage: 7.5-325MG TABLET, 1X/DAY AS NEEDED
     Route: 048
  12. VASOTEC [Concomitant]
     Dosage: 10 MG, 1X/DAY
     Route: 048
  13. TIZANIDINE HYDROCHLORIDE [Concomitant]
     Dosage: 1 MG (1/2 TABLET), 1X/DAY
     Route: 048
  14. METHOTREXATE [Concomitant]
     Indication: RHEUMATOID ARTHRITIS
     Dosage: 15 MG, WEEKLY
     Route: 048
  15. PLAQUENIL [Concomitant]
     Dosage: 200 MG, 1X/DAY
     Route: 048
  16. HYDROXYZINE HYDROCHLORIDE [Concomitant]
     Indication: PRURITUS
     Dosage: 25 MG, 3X/DAY AS NEEDED
  17. BENZONATATE [Concomitant]
     Indication: COUGH
     Dosage: 200 MG, 3X/DAY AS NEEDED
  18. GABAPENTIN [Concomitant]
     Indication: NEURITIS
     Dosage: 600 MG, 4X/DAY
  19. OMEGA-3 FATTY ACIDS [Concomitant]
     Dosage: 1000 MG, 3X/DAY
     Route: 048
  20. VERAPAMIL [Concomitant]
     Dosage: 240MG (1 TABLET) IN MORNING AND 120MG (1/2 TABLET) AT BEDTIME
  21. CALCIUM WITH VITAMIN D [Concomitant]
     Dosage: 600-200MG UNIT TABLET, 1X/DAY
     Route: 048
  22. XANAX [Concomitant]
     Dosage: 0.25 MG, 2X/DAY AS NEEDED
     Route: 048
  23. PROZAC [Suspect]
     Indication: DEPRESSION
     Dosage: UNK
     Route: 048
  24. FLONASE [Concomitant]
     Indication: RHINITIS
     Dosage: EITHER 1 SPRAY EACH NOSTRIL TWICE DAILY, OR 2 SPRAYS EAACH NOSTRIL ONCE DAILY, AS NEEDED
     Route: 045
  25. ZYRTEC [Concomitant]
     Dosage: 10 MG, 1X/DAY (BEDTIME)
     Route: 048
  26. FIBER-LAX [Concomitant]
     Dosage: 625 MG, 2X/DAY
     Route: 048
  27. FOLIC ACID [Concomitant]
     Dosage: 2 MG, 1X/DAY
     Route: 048

REACTIONS (4)
  - DYSGEUSIA [None]
  - STRESS [None]
  - DRUG INEFFECTIVE [None]
  - OSTEOPENIA [None]
